FAERS Safety Report 12413549 (Version 1)
Quarter: 2016Q2

REPORT INFORMATION
  Report Type: Spontaneous
  Country: DK (occurrence: DK)
  Receive Date: 20160527
  Receipt Date: 20160527
  Transmission Date: 20160815
  Serious: Yes (Hospitalization)
  Sender: FDA-Public Use
  Company Number: DK-SA-2016SA101238

PATIENT

DRUGS (2)
  1. EPINEPHRINE. [Suspect]
     Active Substance: EPINEPHRINE
     Indication: ANAPHYLACTIC REACTION
     Route: 064
  2. AMPICILLIN [Suspect]
     Active Substance: AMPICILLIN
     Indication: INFECTION PROPHYLAXIS
     Dosage: INFUSION
     Route: 064

REACTIONS (8)
  - Blood lactic acid increased [Recovered/Resolved]
  - Asphyxia [Recovered/Resolved]
  - Foetal exposure during pregnancy [Unknown]
  - Foetal distress syndrome [Recovered/Resolved]
  - Heart rate decreased [Recovered/Resolved]
  - Blood pH decreased [Recovered/Resolved]
  - Base excess decreased [Recovered/Resolved]
  - Apgar score low [Recovered/Resolved]
